FAERS Safety Report 5218402-2 (Version None)
Quarter: 2007Q1

REPORT INFORMATION
  Report Type: 
  Country: None (occurrence: None)
  Receive Date: 20070122
  Receipt Date: 20070105
  Transmission Date: 20070707
  Serious: Yes (Death, Life-Threatening, Hospitalization)
  Sender: FDA-Public Use
  Company Number: S06-GER-00408-01

PATIENT
  Age: 64 Year
  Sex: Male

DRUGS (1)
  1. CITALOPRAM HYDROBROMIDE [Suspect]
     Indication: DEPRESSION
     Dosage: 20 MG PO
     Route: 048
     Dates: start: 20051222, end: 20051228

REACTIONS (5)
  - DRUG LEVEL DECREASED [None]
  - FACTOR XIII DEFICIENCY [None]
  - PLATELET FUNCTION TEST ABNORMAL [None]
  - POST PROCEDURAL HAEMORRHAGE [None]
  - PULMONARY HAEMORRHAGE [None]
